FAERS Safety Report 25917198 (Version 1)
Quarter: 2025Q4

REPORT INFORMATION
  Report Type: Spontaneous
  Country: US (occurrence: US)
  Receive Date: 20251014
  Receipt Date: 20251014
  Transmission Date: 20260117
  Serious: No
  Sender: AMNEAL
  Company Number: US-AMNEAL PHARMACEUTICALS-2025-AMRX-02599

PATIENT

DRUGS (1)
  1. DICLOFENAC SODIUM [Suspect]
     Active Substance: DICLOFENAC SODIUM
     Indication: Pain
     Dosage: 1.5 % W/W
     Route: 061

REACTIONS (5)
  - Application site burn [Unknown]
  - Application site pruritus [Unknown]
  - Drug hypersensitivity [Unknown]
  - Application site acne [Unknown]
  - Product odour abnormal [Unknown]
